FAERS Safety Report 5727379-2 (Version None)
Quarter: 2008Q2

REPORT INFORMATION
  Report Type: 
  Country: None (occurrence: None)
  Receive Date: 20080505
  Receipt Date: 20080505
  Transmission Date: 20081010
  Serious: No
  Sender: FDA-Public Use
  Company Number: None

PATIENT
  Age: 60 Year
  Sex: Female
  Weight: 113.3993 kg

DRUGS (1)
  1. HEPARIN [Suspect]
     Indication: PREOPERATIVE CARE
     Dosage: 0.375 ML X 2
     Dates: start: 20080312, end: 20080313

REACTIONS (4)
  - BURNING SENSATION [None]
  - DIZZINESS [None]
  - FEELING ABNORMAL [None]
  - NAUSEA [None]
